FAERS Safety Report 20115676 (Version 10)
Quarter: 2022Q2

REPORT INFORMATION
  Report Type: Report from Study
  Country: KR (occurrence: None)
  Receive Date: 20211126
  Receipt Date: 20220609
  Transmission Date: 20220721
  Serious: Yes (Life-Threatening, Hospitalization)
  Sender: FDA-Public Use
  Company Number: KR-ROCHE-2963616

PATIENT
  Age: 45 Year
  Sex: Female
  Weight: 52 kg

DRUGS (24)
  1. ATEZOLIZUMAB [Suspect]
     Active Substance: ATEZOLIZUMAB
     Indication: HER2 positive breast cancer
     Dosage: ON 09/NOV/2021, LAST DOSE WAS ADMINISTERED PRIOR TO AE. (1200MG/20ML ML VL)
     Route: 041
     Dates: start: 20211109
  2. ADO-TRASTUZUMAB EMTANSINE [Suspect]
     Active Substance: ADO-TRASTUZUMAB EMTANSINE
     Indication: HER2 positive breast cancer
     Dosage: ON 09/NOV/2021, LAST DOSE OF 200.5 MG/KG WAS ADMINISTERED PRIOR TO AE ONSET.
     Route: 042
     Dates: start: 20211109
  3. CIPROBAY [Concomitant]
     Dates: start: 20211123, end: 20211130
  4. NEURONTIN [Concomitant]
     Active Substance: GABAPENTIN
     Indication: Hypoaesthesia
     Dates: start: 20211025, end: 20220117
  5. ACETPHEN PREMIX [Concomitant]
     Indication: Pyrexia
     Dates: start: 20211121, end: 20211122
  6. TAZOPERAN [Concomitant]
     Indication: Antibiotic therapy
     Dates: start: 20211121, end: 20211123
  7. PLASMA SOLUTION A [Concomitant]
     Dates: start: 20211121, end: 20211122
  8. URSODIOL [Concomitant]
     Active Substance: URSODIOL
     Dates: start: 20211122, end: 20211206
  9. PENIRAMIN [Concomitant]
     Indication: Premedication
     Dates: start: 20211122, end: 20211125
  10. AMOBUROFEN [Concomitant]
     Indication: Pyrexia
     Dates: start: 20211122, end: 20211125
  11. PLATELETS [Concomitant]
     Active Substance: HUMAN PLATELET, ALLOGENIC
     Indication: Transfusion
     Dates: start: 20211122, end: 20211124
  12. CYNACTEN [Concomitant]
     Dates: start: 20211122, end: 20211122
  13. CEFTAZIDIME [Concomitant]
     Active Substance: CEFTAZIDIME
     Dates: start: 20211123, end: 20211130
  14. ACETAPHEN [Concomitant]
     Dates: start: 20211121, end: 20211122
  15. TRAMADOL HYDROCHLORIDE [Concomitant]
     Active Substance: TRAMADOL HYDROCHLORIDE
     Dates: start: 20211123, end: 20211123
  16. DEXTROMETHORPHAN HYDROBROMIDE [Concomitant]
     Active Substance: DEXTROMETHORPHAN HYDROBROMIDE
     Dates: start: 20211123, end: 20211123
  17. DICLOFENAC SODIUM [Concomitant]
     Active Substance: DICLOFENAC SODIUM
     Dates: start: 20211123, end: 20211123
  18. AMINO ACIDS\DEXTROSE\ELECTROLYTES NOS\SOYBEAN OIL\VITAMINS [Concomitant]
     Active Substance: AMINO ACIDS\DEXTROSE\ELECTROLYTES NOS\SOYBEAN OIL\VITAMINS
     Indication: Malnutrition
     Dates: start: 20211123, end: 20211130
  19. HEPAMERZ INFUSION [Concomitant]
     Dates: start: 20211124, end: 20211129
  20. TEICONIN [Concomitant]
     Dates: start: 20211124, end: 20211130
  21. NEXIUM [Concomitant]
     Active Substance: ESOMEPRAZOLE MAGNESIUM
     Dates: start: 20211124, end: 20211130
  22. POTASSIUM CHLORIDE [Concomitant]
     Active Substance: POTASSIUM CHLORIDE
     Indication: Prophylaxis
     Dates: start: 20211125, end: 20211125
  23. SUPRAX [Concomitant]
     Active Substance: CEFIXIME
     Dates: start: 20211129, end: 20211204
  24. CAROL-F [Concomitant]
     Dates: start: 20211124, end: 20211204

REACTIONS (2)
  - Thrombocytopenia [Recovered/Resolved]
  - Neutrophil count decreased [Recovered/Resolved]

NARRATIVE: CASE EVENT DATE: 20211119
